FAERS Safety Report 7789115-8 (Version None)
Quarter: 2011Q3

REPORT INFORMATION
  Report Type: 
  Country: None (occurrence: None)
  Receive Date: 20110930
  Receipt Date: 20110921
  Transmission Date: 20111222
  Serious: Yes (Other)
  Sender: FDA-Public Use
  Company Number: GB-JNJFOC-20110901873

PATIENT
  Sex: Female

DRUGS (22)
  1. INFLIXIMAB, RECOMBINANT [Suspect]
     Indication: ANTI-NEUTROPHIL CYTOPLASMIC ANTIBODY POSITIVE VASCULITIS
     Dosage: ONE DOSE
     Route: 042
  2. CYCLOPHOSPHAMIDE [Suspect]
     Indication: WEGENER'S GRANULOMATOSIS
     Dosage: A TOTAL OF 3 DOSED
     Route: 042
  3. PREDNISOLONE [Suspect]
     Indication: ANTI-NEUTROPHIL CYTOPLASMIC ANTIBODY POSITIVE VASCULITIS
     Route: 048
  4. MYCOPHENOLATE MOFETIL [Suspect]
     Indication: ANTI-NEUTROPHIL CYTOPLASMIC ANTIBODY POSITIVE VASCULITIS
     Dosage: 2 DOSES
     Route: 065
  5. CYCLOPHOSPHAMIDE [Suspect]
     Dosage: 1-2 MG/KG/DAY FOR 3-6 MONTHS
     Route: 048
  6. CYCLOSPORINE [Suspect]
     Indication: WEGENER'S GRANULOMATOSIS
     Route: 065
  7. CYCLOSPORINE [Suspect]
     Indication: ANTI-NEUTROPHIL CYTOPLASMIC ANTIBODY POSITIVE VASCULITIS
     Route: 065
  8. METHYLPREDNISOLONE [Suspect]
     Indication: ANTI-NEUTROPHIL CYTOPLASMIC ANTIBODY POSITIVE VASCULITIS
     Route: 042
  9. RITUXIMAB [Suspect]
     Indication: ANTI-NEUTROPHIL CYTOPLASMIC ANTIBODY POSITIVE VASCULITIS
     Dosage: 2 DOSES
     Route: 065
  10. PREDNISOLONE [Suspect]
     Indication: WEGENER'S GRANULOMATOSIS
     Route: 048
  11. AZATHIOPRINE [Suspect]
     Indication: WEGENER'S GRANULOMATOSIS
     Dosage: 2 DOSES
     Route: 065
  12. AZATHIOPRINE [Suspect]
     Indication: ANTI-NEUTROPHIL CYTOPLASMIC ANTIBODY POSITIVE VASCULITIS
     Dosage: 2 DOSES
     Route: 065
  13. MYCOPHENOLATE MOFETIL [Suspect]
     Indication: WEGENER'S GRANULOMATOSIS
     Dosage: 2 DOSES
     Route: 065
  14. CYCLOPHOSPHAMIDE [Suspect]
     Dosage: WEEKLY TREATMENTS FOR ANOTHER 2-4 DOSES
     Route: 042
  15. CYCLOPHOSPHAMIDE [Suspect]
     Dosage: A TOTAL OF 3 DOSED
     Route: 042
  16. CAMPATH [Suspect]
     Indication: WEGENER'S GRANULOMATOSIS
     Dosage: ONE DOSE
     Route: 065
  17. CAMPATH [Suspect]
     Indication: ANTI-NEUTROPHIL CYTOPLASMIC ANTIBODY POSITIVE VASCULITIS
     Dosage: ONE DOSE
     Route: 065
  18. CYCLOPHOSPHAMIDE [Suspect]
     Dosage: 1-2 MG/KG/DAY FOR 3-6 MONTHS
     Route: 048
  19. METHYLPREDNISOLONE [Suspect]
     Indication: WEGENER'S GRANULOMATOSIS
     Route: 042
  20. INFLIXIMAB, RECOMBINANT [Suspect]
     Indication: WEGENER'S GRANULOMATOSIS
     Dosage: ONE DOSE
     Route: 042
  21. CYCLOPHOSPHAMIDE [Suspect]
     Indication: ANTI-NEUTROPHIL CYTOPLASMIC ANTIBODY POSITIVE VASCULITIS
     Dosage: WEEKLY TREATMENTS FOR ANOTHER 2-4 DOSES
     Route: 042
  22. RITUXIMAB [Suspect]
     Indication: WEGENER'S GRANULOMATOSIS
     Dosage: 2 DOSES
     Route: 065

REACTIONS (7)
  - BRONCHOSTENOSIS [None]
  - NASAL SEPTUM DISORDER [None]
  - PNEUMOTHORAX [None]
  - BRONCHIECTASIS [None]
  - LOWER RESPIRATORY TRACT INFECTION [None]
  - HEARING IMPAIRED [None]
  - OESOPHAGEAL CANDIDIASIS [None]
